FAERS Safety Report 12545319 (Version 1)
Quarter: 2016Q3

REPORT INFORMATION
  Report Type: Spontaneous
  Country: US (occurrence: US)
  Receive Date: 20160711
  Receipt Date: 20160711
  Transmission Date: 20161109
  Serious: Yes (Other)
  Sender: FDA-Public Use
  Company Number: US-PFIZER INC-2016176437

PATIENT
  Sex: Male

DRUGS (1)
  1. EPIPEN JR [Suspect]
     Active Substance: EPINEPHRINE
     Dosage: 0.3 MG, UNK
     Dates: start: 20151117, end: 20151117

REACTIONS (6)
  - Injection site pain [Recovered/Resolved]
  - Injection site movement impairment [Not Recovered/Not Resolved]
  - Wrong technique in product usage process [Recovered/Resolved]
  - Injection site pallor [Recovered/Resolved]
  - Accidental exposure to product [Recovered/Resolved]
  - Injection site joint inflammation [Not Recovered/Not Resolved]

NARRATIVE: CASE EVENT DATE: 201511
